FAERS Safety Report 6285086-4 (Version None)
Quarter: 2009Q3

REPORT INFORMATION
  Report Type: 
  Country: None (occurrence: None)
  Receive Date: 20090727
  Receipt Date: 20090717
  Transmission Date: 20100115
  Serious: Yes (Hospitalization, Disabling)
  Sender: FDA-Public Use
  Company Number: US-MERCK-0902USA01600

PATIENT
  Age: 63 Year
  Sex: Female

DRUGS (2)
  1. FOSAMAX [Suspect]
     Indication: OSTEOPOROSIS
     Route: 048
     Dates: start: 19990201, end: 20080101
  2. FOSAMAX [Suspect]
     Route: 048
     Dates: start: 19960101, end: 20080201

REACTIONS (12)
  - ABSCESS [None]
  - ADVERSE DRUG REACTION [None]
  - BLOOD CHOLESTEROL INCREASED [None]
  - FEMUR FRACTURE [None]
  - HYPERTENSION [None]
  - HYPOTENSION [None]
  - JAW DISORDER [None]
  - LIPIDS INCREASED [None]
  - OSTEOMYELITIS [None]
  - OSTEONECROSIS [None]
  - PAIN [None]
  - PULPITIS DENTAL [None]
